FAERS Safety Report 10954384 (Version 1)
Quarter: 2015Q1

REPORT INFORMATION
  Report Type: Spontaneous
  Country: US (occurrence: US)
  Receive Date: 20150325
  Receipt Date: 20150325
  Transmission Date: 20150721
  Serious: No
  Sender: FDA-Public Use
  Company Number: US-BAYER-2015-067212

PATIENT
  Age: 73 Year
  Sex: Male

DRUGS (2)
  1. SUTENT [Concomitant]
     Active Substance: SUNITINIB MALATE
  2. ALEVE [Suspect]
     Active Substance: NAPROXEN SODIUM

REACTIONS (1)
  - Drug ineffective [Unknown]
